FAERS Safety Report 7089364-0 (Version None)
Quarter: 2010Q4

REPORT INFORMATION
  Report Type: 
  Country: None (occurrence: None)
  Receive Date: 20101108
  Receipt Date: 20101102
  Transmission Date: 20110411
  Serious: Yes (Other)
  Sender: FDA-Public Use
  Company Number: CHPA2010US17108

PATIENT
  Age: 20 Year
  Sex: Female
  Weight: 90.703 kg

DRUGS (1)
  1. EXCEDRIN (MIGRAINE) [Suspect]
     Indication: DYSMENORRHOEA
     Dosage: 2 TABLETS, TWICE A DAY
     Route: 048
     Dates: start: 20101102, end: 20101102

REACTIONS (1)
  - HAEMATEMESIS [None]
